FAERS Safety Report 18457584 (Version 6)
Quarter: 2021Q3

REPORT INFORMATION
  Report Type: Spontaneous
  Country: JP (occurrence: JP)
  Receive Date: 20201103
  Receipt Date: 20210810
  Transmission Date: 20211014
  Serious: Yes (Life-Threatening, Hospitalization, Other)
  Sender: FDA-Public Use
  Company Number: JP-009507513-2009JPN000438J

PATIENT
  Age: 78 Year
  Sex: Male
  Weight: 54 kg

DRUGS (21)
  1. CARBOPLATIN. [Concomitant]
     Active Substance: CARBOPLATIN
     Indication: LUNG ADENOCARCINOMA STAGE I
     Dosage: 370 MILLIGRAM, Q3W
     Route: 041
     Dates: start: 20200827, end: 20201126
  2. EPL [POLYENE PHOSPHATIDYLCHOLINE] [Concomitant]
     Dosage: 250 MILLIGRAM, TID
     Route: 048
     Dates: end: 20210224
  3. CALONAL [Concomitant]
     Active Substance: ACETAMINOPHEN
     Dosage: 400 MG AT PYREXIA
     Route: 048
     Dates: start: 20210212
  4. ALIMTA [Suspect]
     Active Substance: PEMETREXED DISODIUM
     Dosage: 700 MILLIGRAM, Q3W
     Route: 041
     Dates: start: 20210114, end: 20210114
  5. TAKECAB [Concomitant]
     Active Substance: VONOPRAZAN FUMARATE
     Dosage: 20 MG ONCE/DAY AFTER BREAKFAST
     Route: 048
     Dates: start: 20200409
  6. METHYCOBAL [Concomitant]
     Active Substance: METHYLCOBALAMIN
     Dosage: 1000 MICROGRAM
     Route: 030
     Dates: start: 20210325
  7. MIYA?BM [Concomitant]
     Active Substance: CLOSTRIDIUM BUTYRICUM SPORES STRAIN M-55
     Dosage: 1 GRAM, TID
     Route: 048
  8. AMBROXOL HYDROCHLORIDE [Concomitant]
     Active Substance: AMBROXOL HYDROCHLORIDE
     Dosage: 15 MILLIGRAM, TID
     Route: 048
     Dates: start: 20200409, end: 20210224
  9. KEYTRUDA [Suspect]
     Active Substance: PEMBROLIZUMAB
     Dosage: 200 MILLIGRAM, Q3W
     Route: 041
     Dates: start: 20201001, end: 20201126
  10. ALIMTA [Suspect]
     Active Substance: PEMETREXED DISODIUM
     Dosage: 600 MILLIGRAM, Q3W
     Route: 041
     Dates: start: 20210204, end: 20210204
  11. DIPYRIDAMOLE. [Concomitant]
     Active Substance: DIPYRIDAMOLE
     Dosage: 0.2 GRAM, TID
     Route: 048
  12. FOLIAMIN [FOLIC ACID] [Concomitant]
     Dosage: 2. 5 MG ONCE/DAY AFTER BREAKFAST
     Route: 048
     Dates: start: 20200730, end: 20210224
  13. FOLIAMIN [FOLIC ACID] [Concomitant]
     Dosage: 2. 5 MG ONCE/DAY AFTER BREAKFAST
     Route: 048
     Dates: start: 20210325, end: 20210520
  14. CARBOCISTEINE [Concomitant]
     Active Substance: CARBOCYSTEINE
     Dosage: 500 MILLIGRAM, TID
     Dates: start: 20200409, end: 20210224
  15. KEYTRUDA [Suspect]
     Active Substance: PEMBROLIZUMAB
     Indication: LUNG ADENOCARCINOMA STAGE I
     Dosage: 200 MILLIGRAM, Q3W
     Route: 041
     Dates: start: 20200827, end: 20200827
  16. ALIMTA [Suspect]
     Active Substance: PEMETREXED DISODIUM
     Dosage: 500 MILLIGRAM, Q3W
     Route: 041
     Dates: start: 20210408, end: 20210408
  17. METHYCOBAL [Concomitant]
     Active Substance: METHYLCOBALAMIN
     Dosage: 1000 MICROGRAM
     Route: 030
     Dates: start: 20200731
  18. KEYTRUDA [Suspect]
     Active Substance: PEMBROLIZUMAB
     Dosage: 200 MILLIGRAM, Q3W
     Route: 041
     Dates: start: 20210114
  19. ALIMTA [Suspect]
     Active Substance: PEMETREXED DISODIUM
     Indication: LUNG ADENOCARCINOMA STAGE I
     Dosage: 620 MILLIGRAM, Q3W
     Route: 041
     Dates: start: 20200827, end: 20201126
  20. SENNOSIDE A+B [Concomitant]
     Active Substance: SENNOSIDES A AND B
     Dosage: UNK
     Route: 048
     Dates: start: 20210214
  21. SPIOLTO RESPIMAT [Concomitant]
     Active Substance: OLODATEROL HYDROCHLORIDE\TIOTROPIUM BROMIDE MONOHYDRATE
     Dosage: 1 KIT ONCE/DAY
     Dates: start: 20200730

REACTIONS (10)
  - Constipation [Unknown]
  - Off label use [Unknown]
  - Lung opacity [Unknown]
  - Nausea [Unknown]
  - Nervous system disorder [Recovered/Resolved]
  - Febrile neutropenia [Recovered/Resolved]
  - Decreased appetite [Unknown]
  - Hepatic function abnormal [Recovered/Resolved]
  - Cholangitis [Recovered/Resolved]
  - Malignant neoplasm progression [Unknown]

NARRATIVE: CASE EVENT DATE: 202008
